FAERS Safety Report 16521006 (Version 1)
Quarter: 2019Q3

REPORT INFORMATION
  Report Type: Spontaneous
  Country: JP (occurrence: JP)
  Receive Date: 20190703
  Receipt Date: 20190703
  Transmission Date: 20191004
  Serious: Yes (Death, Other)
  Sender: FDA-Public Use
  Company Number: JP-ROCHE-2344270

PATIENT
  Age: 66 Year
  Sex: Male

DRUGS (2)
  1. RITUXAN [Suspect]
     Active Substance: RITUXIMAB
     Indication: B-CELL LYMPHOMA
     Route: 041
  2. BENDAMUSTINE HYDROCHLORIDE. [Suspect]
     Active Substance: BENDAMUSTINE HYDROCHLORIDE
     Indication: B-CELL LYMPHOMA
     Route: 065

REACTIONS (9)
  - Multiple organ dysfunction syndrome [Fatal]
  - Cardiac failure [Unknown]
  - Hypophagia [Unknown]
  - Lymphocyte count decreased [Unknown]
  - Renal disorder [Unknown]
  - Pneumonia cytomegaloviral [Unknown]
  - Pancytopenia [Unknown]
  - Renal impairment [Unknown]
  - Hepatic function abnormal [Unknown]
